FAERS Safety Report 6085430-7 (Version None)
Quarter: 2009Q1

REPORT INFORMATION
  Report Type: 
  Country: None (occurrence: None)
  Receive Date: 20090217
  Receipt Date: 20081217
  Transmission Date: 20090719
  Serious: No
  Sender: FDA-Public Use
  Company Number: WAES 0812USA03676

PATIENT
  Age: 73 Year
  Sex: Female

DRUGS (1)
  1. ZOLINZA [Suspect]
     Indication: MYCOSIS FUNGOIDES
     Dosage: 100 MG/BID/PO
     Route: 048
     Dates: start: 20081030

REACTIONS (3)
  - CHILLS [None]
  - GENERALISED ERYTHEMA [None]
  - RASH [None]
